FAERS Safety Report 11988724 (Version 1)
Quarter: 2016Q1

REPORT INFORMATION
  Report Type: Report from Study
  Country: US (occurrence: US)
  Receive Date: 20160202
  Receipt Date: 20160202
  Transmission Date: 20160526
  Serious: Yes (Death, Hospitalization, Other)
  Sender: FDA-Public Use
  Company Number: US-PFIZER INC-2015477178

PATIENT
  Age: 58 Year
  Sex: Male

DRUGS (1)
  1. DOXORUBICIN HCL [Suspect]
     Active Substance: DOXORUBICIN HYDROCHLORIDE
     Indication: PROSTATE CANCER
     Dosage: UNK UNK, CYCLIC
     Route: 042
     Dates: end: 19711111

REACTIONS (2)
  - Granulocytopenia [Unknown]
  - Cardiac failure congestive [Fatal]
